FAERS Safety Report 10740611 (Version 1)
Quarter: 2015Q1

REPORT INFORMATION
  Report Type: Report from Study
  Country: US (occurrence: US)
  Receive Date: 20150127
  Receipt Date: 20150127
  Transmission Date: 20150721
  Serious: Yes (Hospitalization)
  Sender: FDA-Public Use
  Company Number: US-JNJFOC-20150107900

PATIENT
  Age: 63 Year
  Sex: Female
  Weight: 54.43 kg

DRUGS (5)
  1. STELARA [Suspect]
     Active Substance: USTEKINUMAB
     Indication: PSORIASIS
     Route: 058
     Dates: start: 20140414
  2. FOLIC ACID. [Concomitant]
     Active Substance: FOLIC ACID
     Indication: POLYCYTHAEMIA
     Route: 065
     Dates: start: 2003
  3. STELARA [Suspect]
     Active Substance: USTEKINUMAB
     Indication: PSORIATIC ARTHROPATHY
     Route: 058
     Dates: start: 20140414
  4. ADVAIR HFA [Concomitant]
     Active Substance: FLUTICASONE PROPIONATE\SALMETEROL XINAFOATE
     Indication: CHRONIC OBSTRUCTIVE PULMONARY DISEASE
     Dosage: ONCE IN THE AM, ONCE IN THE PM
     Route: 065
     Dates: start: 2012
  5. DONNATAL [Concomitant]
     Active Substance: ATROPINE SULFATE\HYOSCYAMINE SULFATE\PHENOBARBITAL\SCOPOLAMINE HYDROBROMIDE
     Indication: IRRITABLE BOWEL SYNDROME
     Dosage: AS NEEDED
     Route: 065
     Dates: start: 2003

REACTIONS (9)
  - Chronic obstructive pulmonary disease [Unknown]
  - Influenza [Recovered/Resolved]
  - Bronchopneumonia [Recovered/Resolved]
  - Irritable bowel syndrome [Unknown]
  - Psoriatic arthropathy [Not Recovered/Not Resolved]
  - Drug ineffective [Unknown]
  - Psoriasis [Not Recovered/Not Resolved]
  - Stress [Not Recovered/Not Resolved]
  - Visual impairment [Not Recovered/Not Resolved]

NARRATIVE: CASE EVENT DATE: 20140520
